FAERS Safety Report 7423983-4 (Version None)
Quarter: 2011Q2

REPORT INFORMATION
  Report Type: 
  Country: None (occurrence: None)
  Receive Date: 20110411
  Receipt Date: 20110322
  Transmission Date: 20111010
  Serious: Yes (Death, Life-Threatening)
  Sender: FDA-Public Use
  Company Number: VISP-NO-1103S-0086

PATIENT
  Age: 71 Year
  Sex: Male
  Weight: 87 kg

DRUGS (5)
  1. NAVIXEN PLUS (EMESTAR PLUS) [Concomitant]
  2. IDAPTAN (TRIMETAZIDINE HYDROCHLORIDE) [Concomitant]
  3. AMLODIPINE [Concomitant]
  4. VISIPAQUE [Suspect]
     Indication: METASTASIS
     Dosage: 100 ML, SINGLE DOSE, INTRAVENOUS
     Route: 042
     Dates: start: 20110301, end: 20110301
  5. HYDROCHLOROTHIAZIDE [Concomitant]

REACTIONS (3)
  - FLUID OVERLOAD [None]
  - CARDIAC FAILURE [None]
  - CARDIO-RESPIRATORY ARREST [None]
